FAERS Safety Report 11111088 (Version 1)
Quarter: 2015Q2

REPORT INFORMATION
  Report Type: Spontaneous
  Country: US (occurrence: US)
  Receive Date: 20150513
  Receipt Date: 20150513
  Transmission Date: 20150821
  Serious: Yes (Other)
  Sender: FDA-Public Use
  Company Number: US-PFIZER INC-2015159990

PATIENT
  Age: 41 Year
  Sex: Female
  Weight: 49 kg

DRUGS (3)
  1. VENLAFAXINE HCL [Suspect]
     Active Substance: VENLAFAXINE HYDROCHLORIDE
     Indication: DEPRESSION
  2. VENLAFAXINE HCL [Suspect]
     Active Substance: VENLAFAXINE HYDROCHLORIDE
     Indication: POST-TRAUMATIC STRESS DISORDER
     Dosage: 150 MG, UNK
  3. VENLAFAXINE HCL [Suspect]
     Active Substance: VENLAFAXINE HYDROCHLORIDE
     Indication: ANXIETY

REACTIONS (8)
  - Palpitations [Unknown]
  - Disturbance in attention [Unknown]
  - Dizziness [Unknown]
  - Tremor [Unknown]
  - Insomnia [Unknown]
  - Blood pressure increased [Unknown]
  - Mania [Unknown]
  - Drug ineffective [Not Recovered/Not Resolved]
